FAERS Safety Report 8321849-9 (Version None)
Quarter: 2012Q2

REPORT INFORMATION
  Report Type: 
  Country: None (occurrence: None)
  Receive Date: 20120426
  Receipt Date: 20120413
  Transmission Date: 20120825
  Serious: Yes (Other)
  Sender: FDA-Public Use
  Company Number: 2012AP000905

PATIENT
  Age: 66 Year
  Sex: Male

DRUGS (3)
  1. SIMVASTATIN [Suspect]
     Indication: BLOOD CHOLESTEROL INCREASED
     Dosage: 20 MG; PO
     Route: 048
     Dates: start: 20110101
  2. ASPIRIN [Concomitant]
  3. AMLODIPINE [Suspect]
     Indication: HYPERTENSION
     Dosage: 5 MG; PO
     Route: 048

REACTIONS (7)
  - RENAL IMPAIRMENT [None]
  - PERIPHERAL COLDNESS [None]
  - NOCTURIA [None]
  - FEELING COLD [None]
  - POLLAKIURIA [None]
  - RAYNAUD'S PHENOMENON [None]
  - CHILLS [None]
